FAERS Safety Report 5246982-X (Version None)
Quarter: 2007Q1

REPORT INFORMATION
  Report Type: 
  Country: None (occurrence: None)
  Receive Date: 20070226
  Receipt Date: 20070219
  Transmission Date: 20070707
  Serious: Yes (Hospitalization)
  Sender: FDA-Public Use
  Company Number: JP-JPN-A200602671

PATIENT
  Age: 82 Year
  Sex: Female
  Weight: 38 kg

DRUGS (10)
  1. VALTREX [Suspect]
     Indication: HERPES ZOSTER
     Route: 048
     Dates: start: 20060711, end: 20060722
  2. ACYCLOVIR [Suspect]
     Indication: DRUG USE FOR UNKNOWN INDICATION
     Route: 042
     Dates: start: 20060711, end: 20060711
  3. DEPAKENE [Concomitant]
     Dosage: 5.3ML THREE TIMES PER DAY
     Route: 048
  4. PREDONINE [Concomitant]
     Dosage: 40MG PER DAY
     Route: 065
  5. EXCEGRAN [Concomitant]
     Route: 048
  6. PHENOBARBITAL TAB [Concomitant]
     Route: 048
  7. DEPAKENE [Concomitant]
     Indication: EPILEPSY
     Dosage: 15ML PER DAY
     Route: 048
  8. PREDONINE [Concomitant]
     Indication: RHEUMATOID ARTHRITIS
     Dosage: 20MG PER DAY
     Route: 048
  9. EXCEGRAN [Concomitant]
     Indication: EPILEPSY
     Dosage: 3TAB PER DAY
     Route: 048
  10. PHENOBARBITAL TAB [Concomitant]
     Indication: EPILEPSY
     Dosage: 2TAB PER DAY
     Route: 048

REACTIONS (6)
  - BLOOD CREATININE INCREASED [None]
  - BLOOD UREA INCREASED [None]
  - DEHYDRATION [None]
  - DEPRESSED LEVEL OF CONSCIOUSNESS [None]
  - OVERDOSE [None]
  - POISONING [None]
